FAERS Safety Report 18669711 (Version 3)
Quarter: 2021Q4

REPORT INFORMATION
  Report Type: Spontaneous
  Country: JP (occurrence: JP)
  Receive Date: 20201228
  Receipt Date: 20211208
  Transmission Date: 20220304
  Serious: Yes (Hospitalization, Other)
  Sender: FDA-Public Use
  Company Number: JP-PFIZER INC-2020511778

PATIENT
  Age: 73 Year
  Weight: 53 kg

DRUGS (2)
  1. FOSPHENYTOIN SODIUM [Suspect]
     Active Substance: FOSPHENYTOIN SODIUM
     Indication: Seizure
     Dosage: 1150 MG (WITH PHYSIOLOGIC SALINE 100 (UNIT UNKNOWN) OVER 10 MINUTES)
     Route: 041
     Dates: start: 20201031
  2. FOSPHENYTOIN SODIUM [Suspect]
     Active Substance: FOSPHENYTOIN SODIUM
     Dosage: 450 MG (WITH GLUCOSE 100 (UNIT UNKNOWN) OVER 30 MINUTES)
     Route: 041
     Dates: start: 20201101

REACTIONS (3)
  - Hypotension [Recovered/Resolved]
  - Blood albumin decreased [Recovered/Resolved]
  - Toxicity to various agents [Unknown]

NARRATIVE: CASE EVENT DATE: 20201101
